FAERS Safety Report 5350743-0 (Version None)
Quarter: 2007Q2

REPORT INFORMATION
  Report Type: 
  Country: None (occurrence: None)
  Receive Date: 20070608
  Receipt Date: 20070510
  Transmission Date: 20071010
  Serious: No
  Sender: FDA-Public Use
  Company Number: US-BAXTER-2007BH000663

PATIENT
  Sex: Female

DRUGS (11)
  1. GAMMAGARD S/D [Suspect]
     Indication: IMMUNODEFICIENCY COMMON VARIABLE
     Route: 065
  2. GAMMAGARD S/D [Suspect]
     Route: 065
  3. GAMMAGARD S/D [Suspect]
     Route: 065
  4. GAMMAGARD S/D [Suspect]
     Route: 065
  5. GAMMAGARD S/D [Suspect]
     Route: 065
  6. GAMMAGARD S/D [Suspect]
     Route: 065
  7. GAMMAGARD S/D [Suspect]
     Route: 065
  8. GAMMAGARD S/D [Suspect]
     Route: 065
  9. GAMMAGARD S/D [Suspect]
     Route: 065
  10. GAMMAGARD S/D [Suspect]
     Route: 065
  11. GAMMAGARD S/D [Suspect]
     Route: 065

REACTIONS (1)
  - HIV TEST POSITIVE [None]
